FAERS Safety Report 4855583-4 (Version None)
Quarter: 2005Q4

REPORT INFORMATION
  Report Type: 
  Country: None (occurrence: None)
  Receive Date: 20051214
  Receipt Date: 20051128
  Transmission Date: 20060501
  Serious: Yes (Hospitalization)
  Sender: FDA-Public Use
  Company Number: 219815

PATIENT
  Age: 75 Year
  Sex: Male
  Weight: 82 kg

DRUGS (6)
  1. RITUXIMAB (RITUXIMAB) CONC FOR SOLUTION FOR INFUSION [Suspect]
     Indication: CHRONIC LYMPHOCYTIC LEUKAEMIA
     Dosage: 970 MG, Q28D, INTRAVENOUS
     Route: 042
     Dates: start: 20040511, end: 20040928
  2. FLUDARABINE PHOSPHATE [Suspect]
     Indication: CHRONIC LYMPHOCYTIC LEUKAEMIA
     Dosage: 45 MG, Q28D, INTRAVENOUS
     Route: 042
     Dates: start: 20040512, end: 20040930
  3. CYCLOPHOSPHAMIDE [Suspect]
     Indication: CHRONIC LYMPHOCYTIC LEUKAEMIA
     Dosage: 485 MG, Q28D, INTRAVENOUS
     Route: 042
     Dates: start: 20040512, end: 20040930
  4. VALACYCLOVIR (VALACYCLOVIR) [Concomitant]
  5. OMEPRAZOLE [Concomitant]
  6. PREDNISONE [Concomitant]

REACTIONS (1)
  - SUBDURAL HAEMATOMA [None]
